FAERS Safety Report 10167339 (Version 2)
Quarter: 2014Q3

REPORT INFORMATION
  Report Type: Spontaneous
  Country: US (occurrence: US)
  Receive Date: 20140512
  Receipt Date: 20140814
  Transmission Date: 20150326
  Serious: Yes (Life-Threatening, Hospitalization, Other)
  Sender: FDA-Public Use
  Company Number: US-BAYER-2014-066414

PATIENT
  Age: 37 Year
  Sex: Female
  Weight: 70.75 kg

DRUGS (11)
  1. OXYCODONE/APAP [Concomitant]
     Active Substance: ACETAMINOPHEN\OXYCODONE HYDROCHLORIDE
     Indication: RENAL PAIN
     Dosage: 5-325
     Dates: start: 2008, end: 2013
  2. TRAMADOL [Concomitant]
     Active Substance: TRAMADOL
     Indication: MEDICAL DEVICE PAIN
  3. TRAMADOL [Concomitant]
     Active Substance: TRAMADOL
     Indication: RENAL PAIN
     Dosage: 50 MG, UNK
     Dates: start: 2008, end: 2013
  4. AMBIEN [Concomitant]
     Active Substance: ZOLPIDEM TARTRATE
     Indication: SLEEP DISORDER
     Dosage: 10 MG, PRN
     Dates: start: 2008, end: 2013
  5. AMITRIPTYLINE [Concomitant]
     Active Substance: AMITRIPTYLINE
     Indication: SLEEP DISORDER
     Dosage: 100 MG, UNK
     Dates: start: 2008, end: 2013
  6. CLONIDINE. [Concomitant]
     Active Substance: CLONIDINE
     Indication: SLEEP DISORDER
     Dosage: 0.1 MG, UNK
     Dates: start: 2008, end: 2013
  7. BACTRIM DS [Concomitant]
     Active Substance: SULFAMETHOXAZOLE\TRIMETHOPRIM
     Indication: URINARY TRACT INFECTION
     Dosage: 800 PRN
     Dates: start: 201304
  8. NICODERM CQ [Concomitant]
     Active Substance: NICOTINE
     Indication: EX-TOBACCO USER
     Dosage: UNK
     Dates: start: 2014
  9. MIRENA [Suspect]
     Active Substance: LEVONORGESTREL
     Indication: CONTRACEPTION
     Dosage: 20 MCG/24HR, CONT
     Route: 015
     Dates: start: 20130228, end: 20130711
  10. MIRENA [Suspect]
     Active Substance: LEVONORGESTREL
     Indication: MENORRHAGIA
  11. OXYCODONE/APAP [Concomitant]
     Active Substance: ACETAMINOPHEN\OXYCODONE HYDROCHLORIDE
     Indication: MEDICAL DEVICE PAIN

REACTIONS (19)
  - Device difficult to use [None]
  - Uterine perforation [None]
  - Uterine scar [None]
  - Injury [None]
  - Vaginal haemorrhage [Not Recovered/Not Resolved]
  - Dyspareunia [Not Recovered/Not Resolved]
  - Pubic pain [None]
  - Hormone level abnormal [None]
  - Device issue [None]
  - Abdominal pain [None]
  - Anxiety [None]
  - Pelvic pain [None]
  - Device malfunction [None]
  - Menorrhagia [None]
  - Procedural pain [None]
  - Vulvovaginal pain [None]
  - Pain [None]
  - Device dislocation [None]
  - Vaginal infection [None]

NARRATIVE: CASE EVENT DATE: 201302
